FAERS Safety Report 7534596-8 (Version None)
Quarter: 2011Q2

REPORT INFORMATION
  Report Type: 
  Country: None (occurrence: None)
  Receive Date: 20110609
  Receipt Date: 20100428
  Transmission Date: 20111010
  Serious: Yes (Hospitalization)
  Sender: FDA-Public Use
  Company Number: PHHY2009DE46979

PATIENT
  Sex: Female
  Weight: 61 kg

DRUGS (3)
  1. ALLOPURINOL [Concomitant]
     Indication: HYPERURICAEMIA
     Dosage: 150 MG, UNK
     Route: 048
     Dates: start: 19890601
  2. LETROZOLE [Suspect]
     Indication: BREAST CANCER
     Dosage: 2.5 MG,DAILY
     Route: 048
     Dates: start: 20090730, end: 20091116
  3. AMLODIPINE [Concomitant]
     Indication: HYPERTENSION
     Dosage: 5 MG, UNK
     Route: 048
     Dates: start: 19890601

REACTIONS (2)
  - RASH [None]
  - HERPES ZOSTER [None]
